FAERS Safety Report 24964388 (Version 1)
Quarter: 2025Q1

REPORT INFORMATION
  Report Type: Spontaneous
  Country: FR (occurrence: FR)
  Receive Date: 20250213
  Receipt Date: 20250213
  Transmission Date: 20250409
  Serious: Yes (Hospitalization)
  Sender: RANBAXY
  Company Number: FR-AFSSAPS-PP2024001466

PATIENT
  Age: 55 Year
  Sex: Male
  Weight: 94 kg

DRUGS (4)
  1. ALLOPURINOL [Suspect]
     Active Substance: ALLOPURINOL
     Indication: Gout
     Dosage: 100 MILLIGRAM, DAILY, 100MG/J
     Route: 048
     Dates: start: 20241126, end: 20241128
  2. COLCHICINE [Suspect]
     Active Substance: COLCHICINE
     Indication: Gout
     Dosage: 0.5 MILLIGRAM, DAILY, 0.5 MG/J
     Route: 048
     Dates: start: 20241126, end: 20241128
  3. PREDNISONE [Suspect]
     Active Substance: PREDNISONE
     Indication: Gout
     Dosage: 30 MILLIGRAM, DAILY, 30 MG/J
     Route: 048
     Dates: start: 20241122, end: 20241125
  4. PRISTINAMYCIN [Suspect]
     Active Substance: PRISTINAMYCIN
     Indication: Pustule
     Dosage: 3 GRAM, DAILY 3 G/J
     Route: 048
     Dates: start: 20241118, end: 20241125

REACTIONS (1)
  - Pancreatitis acute [Not Recovered/Not Resolved]

NARRATIVE: CASE EVENT DATE: 20241128
